FAERS Safety Report 9034829 (Version 1)
Quarter: 2013Q1

REPORT INFORMATION
  Report Type: Spontaneous
  Country: JP (occurrence: None)
  Receive Date: 20130115
  Receipt Date: 20130115
  Transmission Date: 20140127
  Serious: Yes (Hospitalization)
  Sender: FDA-Public Use
  Company Number: DSA_61719_2013

PATIENT
  Age: 83 Year
  Sex: Female

DRUGS (8)
  1. DICLOFENAC POTASSIUM (DICLOFENAC POTASSIUM) [Suspect]
     Indication: BACK PAIN
     Dosage: (DF  RECTAL)?(UNKNOWN)
  2. AMLODIPINE  BESILATE [Concomitant]
  3. OLMESARTAN  MEDOXOMIL [Suspect]
  4. MAGNESIUM  OXIDE [Suspect]
  5. PRAVASTATIN  SODIUM [Suspect]
  6. LANSOPRAZOLE [Suspect]
  7. TIOTROPIUM  BROMIDE  MONOHYDRATE [Suspect]
  8. BETAMETHASONE\CHLORPHENIRAMINE MALEATE [Suspect]

REACTIONS (9)
  - Anaphylactic reaction [None]
  - Renal failure chronic [None]
  - Blood cholesterol increased [None]
  - Intestinal ischaemia [None]
  - Fear of eating [None]
  - Malnutrition [None]
  - Weight decreased [None]
  - Pancreatic insufficiency [None]
  - Arteriosclerosis [None]
